FAERS Safety Report 8862702 (Version 2)
Quarter: 2012Q4

REPORT INFORMATION
  Report Type: 
  Country: US (occurrence: US)
  Receive Date: 20121026
  Receipt Date: 20121227
  Transmission Date: 20130627
  Serious: Yes (Hospitalization, Other)
  Sender: FDA-Public Use
  Company Number: US-NAPPMUNDI-USA-2012-0089411

PATIENT
  Age: 61 Year
  Sex: Male
  Weight: 84.35 kg

DRUGS (13)
  1. OXYCONTIN (NDA 22-272) [Suspect]
     Indication: PRODUCT USED FOR UNKNOWN INDICATION
     Dosage: 60 mg, bid
     Route: 048
  2. OXYCONTIN (NDA 22-272) [Suspect]
     Dosage: 60 mg, q12h
     Route: 048
  3. OXYCONTIN (NDA 22-272) [Suspect]
     Dosage: 30 mg, tid
     Route: 048
  4. COLACE CAPSULES [Concomitant]
     Indication: CONSTIPATION
     Dosage: 100 mg, bid
  5. PERCOCET                           /00867901/ [Concomitant]
     Indication: BREAKTHROUGH PAIN
     Dosage: UNK, see text
     Dates: start: 201204
  6. DUONEB [Concomitant]
     Indication: PRODUCT USED FOR UNKNOWN INDICATION
  7. CELEXA                             /00582602/ [Concomitant]
     Indication: PRODUCT USED FOR UNKNOWN INDICATION
     Dosage: 40 mg, daily
  8. ATIVAN [Concomitant]
     Indication: PAIN
     Dosage: one-two, 0.5 mg, q4- 6h prn
  9. AMBIEN CR [Concomitant]
     Indication: INSOMNIA
     Dosage: 10 mg, hs
  10. ROBITUSSIN                         /00048001/ [Concomitant]
     Indication: COUGH
     Dosage: UNK, prn
  11. MILK OF MAGNESIA [Concomitant]
     Indication: CONSTIPATION
     Dosage: UNK, prn
  12. MIRALAX                            /00754501/ [Concomitant]
     Indication: CONSTIPATION
     Dosage: UNK, prn
  13. PRILOSEC                           /00661201/ [Concomitant]
     Indication: PRODUCT USED FOR UNKNOWN INDICATION
     Dosage: 20 mg, bid

REACTIONS (10)
  - Malignant neoplasm progression [Unknown]
  - Hypoxia [Not Recovered/Not Resolved]
  - Anaemia [Unknown]
  - Pain [Unknown]
  - Unevaluable event [Unknown]
  - Somnolence [Not Recovered/Not Resolved]
  - Abdominal pain [Unknown]
  - Lethargy [Unknown]
  - Haematochezia [Not Recovered/Not Resolved]
  - Pneumonia [Recovered/Resolved]
